FAERS Safety Report 24112335 (Version 1)
Quarter: 2024Q3

REPORT INFORMATION
  Report Type: Report from Study
  Country: ID (occurrence: None)
  Receive Date: 20240719
  Receipt Date: 20240719
  Transmission Date: 20241016
  Serious: Yes (Hospitalization, Other)
  Sender: ASTRAZENECA
  Company Number: 2020SF39415

PATIENT
  Age: 19166 Day
  Sex: Female

DRUGS (2)
  1. FASLODEX [Suspect]
     Active Substance: FULVESTRANT
     Indication: Breast cancer metastatic
     Dosage: 500.0MG UNKNOWN
     Route: 030
     Dates: start: 20200916
  2. FASLODEX [Suspect]
     Active Substance: FULVESTRANT
     Indication: Oestrogen receptor assay positive
     Dosage: 500.0MG UNKNOWN
     Route: 030
     Dates: start: 20200916

REACTIONS (2)
  - Haemoglobin decreased [Unknown]
  - Blood calcium decreased [Unknown]

NARRATIVE: CASE EVENT DATE: 20201022
